FAERS Safety Report 12450373 (Version 2)
Quarter: 2017Q4

REPORT INFORMATION
  Report Type: Spontaneous
  Country: US (occurrence: US)
  Receive Date: 20160609
  Receipt Date: 20171121
  Transmission Date: 20180320
  Serious: No
  Sender: FDA-Public Use
  Company Number: US-PFIZER INC-2016266582

PATIENT
  Age: 76 Year
  Sex: Female

DRUGS (4)
  1. ATORVASTATIN CALCIUM. [Suspect]
     Active Substance: ATORVASTATIN CALCIUM
     Dosage: UNK
  2. BACTRIM [Suspect]
     Active Substance: SULFAMETHOXAZOLE\TRIMETHOPRIM
     Dosage: UNK
  3. TETRACYCLINE HCL [Suspect]
     Active Substance: TETRACYCLINE HYDROCHLORIDE
     Dosage: UNK
  4. ERYTHROMYCIN. [Suspect]
     Active Substance: ERYTHROMYCIN
     Dosage: UNK

REACTIONS (1)
  - Drug hypersensitivity [Not Recovered/Not Resolved]
